FAERS Safety Report 7347427-6 (Version None)
Quarter: 2011Q1

REPORT INFORMATION
  Report Type: 
  Country: None (occurrence: None)
  Receive Date: 20110311
  Receipt Date: 20110211
  Transmission Date: 20110831
  Serious: Yes (Hospitalization)
  Sender: FDA-Public Use
  Company Number: US-GENENTECH-313798

PATIENT
  Sex: Female

DRUGS (1)
  1. XOLAIR [Suspect]
     Indication: ASTHMA
     Route: 042

REACTIONS (5)
  - ASTHMA [None]
  - OROPHARYNGEAL PAIN [None]
  - FATIGUE [None]
  - PYREXIA [None]
  - PAIN [None]
